FAERS Safety Report 9542183 (Version 1)
Quarter: 2013Q3

REPORT INFORMATION
  Report Type: Spontaneous
  Country: US (occurrence: None)
  Receive Date: 20130919
  Receipt Date: 20130919
  Transmission Date: 20140515
  Serious: No
  Sender: FDA-Public Use
  Company Number: None

PATIENT
  Age: 41 Year
  Sex: Male
  Weight: 124.74 kg

DRUGS (1)
  1. ADVAIR DISKUS [Suspect]
     Indication: ASTHMA
     Route: 048

REACTIONS (6)
  - Vision blurred [None]
  - Lacrimation increased [None]
  - Eye discharge [None]
  - Eye swelling [None]
  - Visual impairment [None]
  - Eyelid margin crusting [None]
